FAERS Safety Report 15634444 (Version 1)
Quarter: 2018Q4

REPORT INFORMATION
  Report Type: Spontaneous
  Country: US (occurrence: US)
  Receive Date: 20181119
  Receipt Date: 20181119
  Transmission Date: 20190205
  Serious: Yes (Other)
  Sender: FDA-Public Use
  Company Number: US-ALLERGAN-1853995US

PATIENT
  Age: 61 Year
  Sex: Male

DRUGS (2)
  1. GENERAL ANESTHETICS [Concomitant]
     Indication: BIOPSY LYMPH GLAND
     Dosage: UNK
  2. BOTULINUM TOXIN TYPE A UNK [Suspect]
     Active Substance: BOTULINUM TOXIN TYPE A
     Indication: MIGRAINE
     Dosage: UNK, SINGLE
     Route: 030

REACTIONS (2)
  - Chronic lymphocytic leukaemia [Unknown]
  - Rash papular [Recovered/Resolved]
